FAERS Safety Report 5356425-3 (Version None)
Quarter: 2007Q2

REPORT INFORMATION
  Report Type: 
  Country: None (occurrence: None)
  Receive Date: 20070530
  Receipt Date: 20061213
  Transmission Date: 20071010
  Serious: Yes (Other)
  Sender: FDA-Public Use
  Company Number: US200609003800

PATIENT
  Age: 48 Year
  Sex: Female
  Weight: 60.3 kg

DRUGS (2)
  1. ZYPREXA [Suspect]
     Dates: start: 20000101
  2. SURMONTIL /SCH/ (TRIMIPRAMINE MALEATE) [Concomitant]

REACTIONS (1)
  - PANCREATITIS [None]
